FAERS Safety Report 7868290-0 (Version None)
Quarter: 2011Q4

REPORT INFORMATION
  Report Type: 
  Country: None (occurrence: None)
  Receive Date: 20111028
  Receipt Date: 20101214
  Transmission Date: 20120403
  Serious: No
  Sender: FDA-Public Use
  Company Number: US-AMGEN-USASP2010001989

PATIENT
  Age: 66 Year
  Sex: Female

DRUGS (11)
  1. SIMVASTATIN [Concomitant]
     Indication: HYPERCHOLESTEROLAEMIA
  2. THYROID TAB [Concomitant]
     Indication: HYPOTHYROIDISM
  3. NOVOLOG [Concomitant]
     Indication: DIABETES MELLITUS
  4. ALEVE [Concomitant]
  5. ASPIRIN [Concomitant]
  6. AFRIN                              /00070001/ [Concomitant]
  7. ENBREL [Suspect]
     Indication: PSORIASIS
     Dosage: 50 MG, QWK
     Dates: start: 20081021, end: 20100801
  8. IBUPROFEN [Concomitant]
  9. ENBREL [Suspect]
     Dosage: 50 MG, 2 TIMES/WK
     Dates: start: 20101101
  10. AVALIDE [Concomitant]
     Indication: HYPERTENSION
  11. VITAMIN B-12 [Concomitant]

REACTIONS (3)
  - URINARY TRACT INFECTION [None]
  - PSORIASIS [None]
  - SINUSITIS [None]
